FAERS Safety Report 19958508 (Version 2)
Quarter: 2024Q1

REPORT INFORMATION
  Report Type: Spontaneous
  Country: JP (occurrence: None)
  Receive Date: 20211015
  Receipt Date: 20240312
  Transmission Date: 20240410
  Serious: Yes (Hospitalization)
  Sender: FDA-Public Use
  Company Number: 2021A768241

PATIENT
  Sex: Female

DRUGS (2)
  1. FASLODEX [Suspect]
     Active Substance: FULVESTRANT
     Indication: Breast cancer female
     Dosage: DOSE UNKNOWN
     Route: 030
  2. VERZENIO [Suspect]
     Active Substance: ABEMACICLIB
     Dosage: DOSE UNKNOWN
     Route: 048

REACTIONS (1)
  - Interstitial lung disease [Unknown]
